FAERS Safety Report 20425369 (Version 1)
Quarter: 2022Q1

REPORT INFORMATION
  Report Type: Spontaneous
  Country: FR (occurrence: FR)
  Receive Date: 20220204
  Receipt Date: 20220204
  Transmission Date: 20220423
  Serious: No
  Sender: FDA-Public Use
  Company Number: FR-EXELIXIS-CABO-21037471

PATIENT
  Age: 73 Year
  Sex: Female
  Weight: 59 kg

DRUGS (8)
  1. CABOMETYX [Suspect]
     Active Substance: CABOZANTINIB S-MALATE
     Indication: Clear cell renal cell carcinoma
     Dosage: 20 MG, QD
     Route: 048
     Dates: start: 20201125, end: 20201231
  2. RAMIPRIL [Concomitant]
     Active Substance: RAMIPRIL
  3. ATORVASTATIN [Concomitant]
     Active Substance: ATORVASTATIN
  4. PREDNISONE [Concomitant]
     Active Substance: PREDNISONE
  5. BISOPROLOL [Concomitant]
     Active Substance: BISOPROLOL
  6. APIXABAN [Concomitant]
     Active Substance: APIXABAN
  7. PANTOPRAZOLE [Concomitant]
     Active Substance: PANTOPRAZOLE
  8. INSULIN NOS [Concomitant]
     Active Substance: INSULIN NOS

REACTIONS (1)
  - Hepatic cytolysis [Recovering/Resolving]

NARRATIVE: CASE EVENT DATE: 20201224
